APPROVED DRUG PRODUCT: AMERGE
Active Ingredient: NARATRIPTAN HYDROCHLORIDE
Strength: EQ 2.5MG BASE **Federal Register determination that product was not discontinued or withdrawn for safety or effectiveness reasons**
Dosage Form/Route: TABLET;ORAL
Application: N020763 | Product #001
Applicant: GLAXOSMITHKLINE LLC
Approved: Feb 10, 1998 | RLD: Yes | RS: No | Type: DISCN